FAERS Safety Report 4526515-3 (Version None)
Quarter: 2004Q4

REPORT INFORMATION
  Report Type: 
  Country: None (occurrence: None)
  Receive Date: 20041210
  Receipt Date: 20041124
  Transmission Date: 20050328
  Serious: Yes (Death)
  Sender: FDA-Public Use
  Company Number: 8008171

PATIENT
  Sex: Female

DRUGS (2)
  1. LORTAB [Suspect]
     Indication: PAIN
     Dosage: PO
     Route: 048
  2. TYLENOL (CAPLET) [Suspect]
     Dosage: PO
     Route: 048

REACTIONS (2)
  - ACCIDENTAL OVERDOSE [None]
  - MEDICATION ERROR [None]
